FAERS Safety Report 8037047-2 (Version None)
Quarter: 2012Q1

REPORT INFORMATION
  Report Type: 
  Country: None (occurrence: None)
  Receive Date: 20120111
  Receipt Date: 20120104
  Transmission Date: 20120608
  Serious: Yes (Hospitalization)
  Sender: FDA-Public Use
  Company Number: US-GLAXOSMITHKLINE-A0877041A

PATIENT
  Age: 68 Year
  Sex: Male
  Weight: 105 kg

DRUGS (14)
  1. AMITRIPTYLINE HCL [Concomitant]
  2. FOLTX [Concomitant]
  3. AVANDIA [Suspect]
     Indication: DIABETES MELLITUS
     Dosage: 4MG PER DAY
     Route: 048
     Dates: start: 20050101
  4. LOPID [Concomitant]
  5. HUMALOG [Concomitant]
  6. ASPIRIN [Concomitant]
  7. CELEXA [Concomitant]
  8. GEMFIBROZIL [Concomitant]
  9. TOPROL-XL [Concomitant]
  10. LANTUS [Concomitant]
  11. CRESTOR [Concomitant]
  12. LISINOPRIL [Concomitant]
  13. AMBIEN [Concomitant]
  14. METOPROLOL SUCCINATE [Concomitant]

REACTIONS (6)
  - ISCHAEMIA [None]
  - FLUID RETENTION [None]
  - PAIN [None]
  - GAIT DISTURBANCE [None]
  - CORONARY ARTERY DISEASE [None]
  - CARDIAC ARREST [None]
